FAERS Safety Report 13524507 (Version 1)
Quarter: 2017Q2

REPORT INFORMATION
  Report Type: Report from Study
  Country: AR (occurrence: AR)
  Receive Date: 20170508
  Receipt Date: 20170508
  Transmission Date: 20170830
  Serious: Yes (Disabling, Other)
  Sender: FDA-Public Use
  Company Number: AR-BAYER-2017-080012

PATIENT
  Sex: Male

DRUGS (4)
  1. CALCITRIOL. [Concomitant]
     Active Substance: CALCITRIOL
  2. NEXAVAR [Suspect]
     Active Substance: SORAFENIB
     Indication: THYROID CANCER
     Dosage: 200 MG, UNK
     Route: 048
     Dates: start: 201507, end: 201701
  3. CALCIUM [Concomitant]
     Active Substance: CALCIUM
  4. LEVOTHYROXINE. [Concomitant]
     Active Substance: LEVOTHYROXINE

REACTIONS (5)
  - Adverse drug reaction [None]
  - Hypertension [Recovering/Resolving]
  - Gait disturbance [Not Recovered/Not Resolved]
  - Epistaxis [None]
  - Pain [Not Recovered/Not Resolved]
